FAERS Safety Report 9553894 (Version 1)
Quarter: 2013Q3

REPORT INFORMATION
  Report Type: Spontaneous
  Country: US (occurrence: None)
  Receive Date: 20130821
  Receipt Date: 20130821
  Transmission Date: 20140515
  Serious: Yes (Other)
  Sender: FDA-Public Use
  Company Number: 1000046602

PATIENT
  Age: 81 Year
  Sex: Female

DRUGS (2)
  1. TUDORZA PRESSAIR [Suspect]
     Indication: CHRONIC OBSTRUCTIVE PULMONARY DISEASE
     Dosage: 400 MCG (400 MCG, 2 IN 1 D)
     Dates: start: 201305, end: 201307
  2. SYMBICORT (BUDESONIDE W/FORMOTEROL FUMARATE ) (BUDESONIDE W/ FORMOTERIDE) [Concomitant]

REACTIONS (1)
  - Arthralgia [None]
